FAERS Safety Report 20327886 (Version 1)
Quarter: 2022Q1

REPORT INFORMATION
  Report Type: Spontaneous
  Country: US (occurrence: US)
  Receive Date: 20220112
  Receipt Date: 20220112
  Transmission Date: 20220423
  Serious: Yes (Other)
  Sender: FDA-Public Use
  Company Number: US-INDIVIOR US-INDV-132506-2022

PATIENT
  Age: 29 Year
  Sex: Female

DRUGS (1)
  1. SUBOXONE [Suspect]
     Active Substance: BUPRENORPHINE HYDROCHLORIDE\NALOXONE HYDROCHLORIDE
     Indication: Substance use disorder
     Dosage: UNK
     Route: 065

REACTIONS (4)
  - Pre-eclampsia [Recovered/Resolved]
  - Premature separation of placenta [Recovered/Resolved]
  - Drug abuse [Recovered/Resolved]
  - Maternal exposure during pregnancy [Recovered/Resolved]
